FAERS Safety Report 21240063 (Version 2)
Quarter: 2022Q4

REPORT INFORMATION
  Report Type: Report from Study
  Country: IN (occurrence: IN)
  Receive Date: 20220822
  Receipt Date: 20221122
  Transmission Date: 20230113
  Serious: No
  Sender: FDA-Public Use
  Company Number: IN-NOVARTISPH-NVSC2022IN155863

PATIENT
  Sex: Female

DRUGS (12)
  1. SECUKINUMAB [Suspect]
     Active Substance: SECUKINUMAB
     Indication: Ankylosing spondylitis
     Dosage: 300 MG, QMO
     Route: 058
     Dates: start: 20220210
  2. SECUKINUMAB [Suspect]
     Active Substance: SECUKINUMAB
     Dosage: 150 MG, QMO
     Route: 058
     Dates: start: 20220706
  3. SECUKINUMAB [Suspect]
     Active Substance: SECUKINUMAB
     Dosage: UNK
     Route: 065
     Dates: start: 20220917
  4. METHOTREXATE SODIUM [Concomitant]
     Active Substance: METHOTREXATE SODIUM
     Indication: Product used for unknown indication
     Dosage: 1 DOSAGE FORM, QD (AFTER LUNCH)
     Route: 048
  5. FOLVITE [Concomitant]
     Active Substance: FOLIC ACID
     Indication: Product used for unknown indication
     Dosage: 1 DOSAGE FORM, QD (AFTER LUNCH)
     Route: 048
  6. NEXPRO-RD [Concomitant]
     Indication: Product used for unknown indication
     Dosage: UNK, QD (40), BEFORE BREAKFAST
     Route: 048
  7. GABAPIN NT [Concomitant]
     Indication: Product used for unknown indication
     Dosage: 1 DOSAGE FORM, QD, BEFOR DINNER
     Route: 048
  8. ETOSHINE [Concomitant]
     Indication: Product used for unknown indication
     Dosage: 1 DOSAGE FORM, BID
     Route: 048
  9. STERNON S [Concomitant]
     Indication: Product used for unknown indication
     Dosage: UNK (LOTION)
     Route: 065
  10. SEVISTA [Concomitant]
     Indication: Product used for unknown indication
     Dosage: UNK, QW, (60)
     Route: 065
  11. PROPYSALIC [Concomitant]
     Indication: Product used for unknown indication
     Dosage: UNK
     Route: 065
  12. HEMFER-XT [Concomitant]
     Indication: Product used for unknown indication
     Dosage: 1 DOSAGE FORM (AFTER LUNCH)
     Route: 048

REACTIONS (9)
  - Tooth disorder [Unknown]
  - Enthesopathy [Unknown]
  - Red blood cell sedimentation rate abnormal [Unknown]
  - Arthralgia [Unknown]
  - Muscle spasms [Unknown]
  - Pain [Unknown]
  - Back pain [Unknown]
  - Musculoskeletal stiffness [Unknown]
  - Laboratory test abnormal [Unknown]
